FAERS Safety Report 4745966-5 (Version None)
Quarter: 2005Q3

REPORT INFORMATION
  Report Type: 
  Country: None (occurrence: None)
  Receive Date: 20050816
  Receipt Date: 20050801
  Transmission Date: 20060218
  Serious: Yes (Congenital Anomaly, Other)
  Sender: FDA-Public Use
  Company Number: US-AMGEN-US144852

PATIENT
  Sex: Male

DRUGS (3)
  1. ENBREL [Suspect]
     Indication: RHEUMATOID ARTHRITIS
     Route: 064
     Dates: start: 20040101
  2. METHOTREXATE [Concomitant]
     Dates: start: 20030101, end: 20040101
  3. PREDNISONE [Concomitant]
     Dates: end: 20040101

REACTIONS (4)
  - CONGENITAL ANOMALY [None]
  - LIMB MALFORMATION [None]
  - MATERNAL DRUGS AFFECTING FOETUS [None]
  - PREMATURE LABOUR [None]
